FAERS Safety Report 11896752 (Version 6)
Quarter: 2016Q3

REPORT INFORMATION
  Report Type: Spontaneous
  Country: US (occurrence: US)
  Receive Date: 20160107
  Receipt Date: 20160708
  Transmission Date: 20161109
  Serious: Yes (Hospitalization)
  Sender: FDA-Public Use
  Company Number: US-ACTELION PHARMACEUTICALS US, INC.-A-NJ2015-129306

PATIENT
  Age: 39 Year
  Sex: Female

DRUGS (4)
  1. TRACLEER [Suspect]
     Active Substance: BOSENTAN
     Indication: PULMONARY ARTERIAL HYPERTENSION
     Dosage: 125 MG, BID
     Route: 048
     Dates: start: 20110627
  2. ADCIRCA [Concomitant]
     Active Substance: TADALAFIL
  3. REMODULIN [Concomitant]
     Active Substance: TREPROSTINIL
  4. VELETRI [Suspect]
     Active Substance: EPOPROSTENOL
     Indication: PULMONARY ARTERIAL HYPERTENSION
     Dosage: 100 NG/KG, PER MIN
     Route: 042
     Dates: start: 201510, end: 20160229

REACTIONS (9)
  - Sluggishness [Unknown]
  - Echocardiogram abnormal [Unknown]
  - Complication associated with device [Unknown]
  - Pallor [Unknown]
  - Pain in jaw [Unknown]
  - Blood viscosity abnormal [Unknown]
  - Device alarm issue [Unknown]
  - Fear [Unknown]
  - Device occlusion [Unknown]
